FAERS Safety Report 8521578-2 (Version None)
Quarter: 2012Q3

REPORT INFORMATION
  Report Type: 
  Country: None (occurrence: None)
  Receive Date: 20120719
  Receipt Date: 20120713
  Transmission Date: 20120928
  Serious: Yes (Hospitalization)
  Sender: FDA-Public Use
  Company Number: PHHY2012JP060251

PATIENT
  Age: 69 Year
  Sex: Male

DRUGS (4)
  1. IMATINIB MESYLATE [Suspect]
     Indication: GASTROINTESTINAL STROMAL TUMOUR
     Dosage: 400 MG DAILY
     Route: 048
     Dates: start: 20111001
  2. IMATINIB MESYLATE [Suspect]
     Route: 048
  3. LANSOPRAZOLE [Concomitant]
     Route: 065
  4. CAPTOPRIL [Concomitant]
     Route: 048

REACTIONS (3)
  - AMMONIA INCREASED [None]
  - TUMOUR LYSIS SYNDROME [None]
  - HEPATIC FUNCTION ABNORMAL [None]
